FAERS Safety Report 7117221-X (Version None)
Quarter: 2010Q4

REPORT INFORMATION
  Report Type: 
  Country: None (occurrence: None)
  Receive Date: 20101122
  Receipt Date: 20101109
  Transmission Date: 20110411
  Serious: Yes (Hospitalization)
  Sender: FDA-Public Use
  Company Number: US-MYLANLABS-2010S1020971

PATIENT
  Age: 63 Year
  Sex: Female

DRUGS (3)
  1. OSELTAMIVIR [Interacting]
     Indication: INFLUENZA
     Route: 048
  2. SOTALOL [Suspect]
     Indication: ATRIAL FIBRILLATION
     Route: 065
  3. DUOCID                             /00892601/ [Concomitant]
     Indication: PYELONEPHRITIS
     Route: 065

REACTIONS (2)
  - DRUG INTERACTION [None]
  - TORSADE DE POINTES [None]
